FAERS Safety Report 23259660 (Version 2)
Quarter: 2023Q4

REPORT INFORMATION
  Report Type: Spontaneous
  Country: US (occurrence: US)
  Receive Date: 20231204
  Receipt Date: 20231225
  Transmission Date: 20240110
  Serious: Yes (Other)
  Sender: FDA-Public Use
  Company Number: US-ABBVIE-5516684

PATIENT
  Sex: Female

DRUGS (1)
  1. LUPRON [Suspect]
     Active Substance: LEUPROLIDE ACETATE
     Indication: Product used for unknown indication
     Route: 065

REACTIONS (37)
  - Blindness [Unknown]
  - Immune system disorder [Unknown]
  - Fatigue [Unknown]
  - Urinary tract disorder [Unknown]
  - Unevaluable event [Unknown]
  - Blood pressure abnormal [Unknown]
  - White blood cell count increased [Unknown]
  - Renal injury [Unknown]
  - Diabetes mellitus [Unknown]
  - Liver injury [Unknown]
  - Pain [Unknown]
  - Blood disorder [Unknown]
  - Deafness [Unknown]
  - Alopecia [Unknown]
  - Uterine leiomyoma [Unknown]
  - Vasodilatation [Unknown]
  - Liver disorder [Unknown]
  - Ear infection [Unknown]
  - Skin disorder [Unknown]
  - Ear pruritus [Unknown]
  - Stress [Unknown]
  - Neuropathy peripheral [Unknown]
  - Pelvic floor dysfunction [Unknown]
  - Ear disorder [Unknown]
  - Burning sensation [Not Recovered/Not Resolved]
  - Gastrointestinal disorder [Unknown]
  - Tooth disorder [Unknown]
  - Illness [Unknown]
  - Infection [Unknown]
  - Surgery [Unknown]
  - Gait inability [Unknown]
  - Nervous system disorder [Unknown]
  - Diet failure [Unknown]
  - Tissue injury [Not Recovered/Not Resolved]
  - Tooth injury [Not Recovered/Not Resolved]
  - Hair injury [Not Recovered/Not Resolved]
  - Hair disorder [Not Recovered/Not Resolved]
